FAERS Safety Report 7214851-1 (Version None)
Quarter: 2011Q1

REPORT INFORMATION
  Report Type: 
  Country: None (occurrence: None)
  Receive Date: 20110107
  Receipt Date: 20100406
  Transmission Date: 20110831
  Serious: No
  Sender: FDA-Public Use
  Company Number: A0853719A

PATIENT
  Sex: Male

DRUGS (6)
  1. BLOOD PRESSURE MEDICATION [Concomitant]
  2. TRICOR [Concomitant]
  3. CRESTOR [Concomitant]
  4. LOVAZA [Suspect]
     Dosage: 1CAP FOUR TIMES PER DAY
     Route: 048
     Dates: start: 20070101
  5. DIABETES MEDICATION [Concomitant]
  6. UNKNOWN DRUG FOR ANXIETY [Concomitant]

REACTIONS (1)
  - ABDOMINAL DISCOMFORT [None]
